FAERS Safety Report 4303518-5 (Version None)
Quarter: 2004Q1

REPORT INFORMATION
  Report Type: 
  Country: None (occurrence: None)
  Receive Date: 20040223
  Receipt Date: 20040209
  Transmission Date: 20041129
  Serious: Yes (Death, Hospitalization, Other)
  Sender: FDA-Public Use
  Company Number: 2004008036

PATIENT
  Age: 17 Year
  Sex: Female

DRUGS (1)
  1. VFEND [Suspect]
     Indication: ASPERGILLOSIS
     Dosage: 400 MG (BID), ORAL
     Route: 048
     Dates: start: 20031020

REACTIONS (1)
  - DEATH [None]
